FAERS Safety Report 4583636-7 (Version None)
Quarter: 2005Q1

REPORT INFORMATION
  Report Type: 
  Country: None (occurrence: None)
  Receive Date: 20050211
  Receipt Date: 20050202
  Transmission Date: 20050727
  Serious: Yes (Hospitalization)
  Sender: FDA-Public Use
  Company Number: HQWYE798424JAN05

PATIENT
  Age: 56 Year
  Sex: Female

DRUGS (9)
  1. EFFEXOR XR [Suspect]
     Indication: BIPOLAR DISORDER
     Dosage: SEE IMAGE
     Dates: start: 20050101, end: 20050101
  2. EFFEXOR XR [Suspect]
     Indication: BIPOLAR DISORDER
     Dosage: SEE IMAGE
     Dates: end: 20050101
  3. EFFEXOR XR [Suspect]
     Indication: BIPOLAR DISORDER
     Dosage: SEE IMAGE
     Dates: start: 20050201
  4. WELLBUTRIN XL [Concomitant]
  5. DEPAKOTE [Concomitant]
  6. LAMICTAL [Concomitant]
  7. RISPERDAL [Concomitant]
  8. SEROQUEL (QUIETIAPINE) [Concomitant]
  9. .. [Concomitant]

REACTIONS (15)
  - AGITATION [None]
  - CONDITION AGGRAVATED [None]
  - COORDINATION ABNORMAL [None]
  - DEPRESSION [None]
  - DIARRHOEA [None]
  - DIZZINESS [None]
  - DRUG WITHDRAWAL SYNDROME [None]
  - HEADACHE [None]
  - HYPOMANIA [None]
  - ILLUSION [None]
  - IRRITABILITY [None]
  - MYALGIA [None]
  - NAUSEA [None]
  - PANIC ATTACK [None]
  - SUICIDAL IDEATION [None]
